FAERS Safety Report 4380219-9 (Version None)
Quarter: 2004Q2

REPORT INFORMATION
  Report Type: 
  Country: None (occurrence: None)
  Receive Date: 20040616
  Receipt Date: 20040616
  Transmission Date: 20050107
  Serious: Yes (Hospitalization)
  Sender: FDA-Public Use
  Company Number: None

PATIENT
  Age: 65 Year
  Sex: Male
  Weight: 131.0895 kg

DRUGS (12)
  1. CARBOPLATIN [Suspect]
     Indication: NON-SMALL CELL LUNG CANCER METASTATIC
     Dosage: 580 MG Q 21 DAYS INTRAVENOUS
     Route: 042
     Dates: start: 20040430, end: 20040430
  2. GEMZAR [Suspect]
     Indication: NON-SMALL CELL LUNG CANCER METASTATIC
     Dosage: 2380 MG DAY 1 AND INTRAVENOUS
     Route: 042
     Dates: start: 20040430, end: 20040507
  3. COZAAR [Concomitant]
  4. ZOCOR [Concomitant]
  5. TRICOR [Concomitant]
  6. KCL TAB [Concomitant]
  7. MAXZIDE [Concomitant]
  8. ALLOPURINOL [Concomitant]
  9. FLONASE [Concomitant]
  10. COMPAZINE [Concomitant]
  11. PEPCID [Concomitant]
  12. EMEND [Concomitant]

REACTIONS (3)
  - BRONCHIAL NEOPLASM [None]
  - HAEMOPTYSIS [None]
  - THROMBOCYTOPENIA [None]
